FAERS Safety Report 7574217-1 (Version None)
Quarter: 2011Q2

REPORT INFORMATION
  Report Type: 
  Country: None (occurrence: None)
  Receive Date: 20110627
  Receipt Date: 20110606
  Transmission Date: 20111010
  Serious: Yes (Other)
  Sender: FDA-Public Use
  Company Number: US-BAYER-2011-049241

PATIENT
  Age: 74 Year
  Sex: Female

DRUGS (5)
  1. DILTIAZEM CD [Concomitant]
     Dosage: 180MG
     Route: 048
  2. FLOVENT [Concomitant]
     Dosage: 1 DF, BID
     Route: 045
  3. LOSARTAN POTASSIUM [Concomitant]
     Dosage: 50/ 12.5MG
     Route: 048
  4. ASPIRIN [Suspect]
     Indication: OEDEMA PERIPHERAL
     Dosage: BOTTLE COUNT 24S
     Route: 048
     Dates: start: 20110604, end: 20110604
  5. TETRACYCLINE [Concomitant]
     Dosage: 1 DF, QD
     Route: 048

REACTIONS (12)
  - HYPOAESTHESIA ORAL [None]
  - PHARYNGEAL OEDEMA [None]
  - DRY MOUTH [None]
  - HYPERSENSITIVITY [None]
  - THROAT IRRITATION [None]
  - SWOLLEN TONGUE [None]
  - SPEECH DISORDER [None]
  - PARAESTHESIA ORAL [None]
  - OROPHARYNGEAL PAIN [None]
  - ORAL DISCOMFORT [None]
  - SWELLING FACE [None]
  - TONGUE PARALYSIS [None]
